FAERS Safety Report 9300347 (Version 1)
Quarter: 2012Q4

REPORT INFORMATION
  Report Type: Spontaneous
  Country: DE (occurrence: None)
  Receive Date: 20121102
  Receipt Date: 20121102
  Transmission Date: 20130627
  Serious: Yes (Hospitalization)
  Sender: FDA-Public Use
  Company Number: IN-2012-3557

PATIENT
  Age: 44 Year
  Sex: Female
  Weight: 57 kg

DRUGS (2)
  1. NAVELBINE (VINORELBINE TARTRATE) INFUSION [Suspect]
     Indication: BREAST CANCER METASTATIC
     Route: 042
     Dates: start: 20120908
  2. AFATINIB [Suspect]
     Indication: BREAST CANCER METASTATIC
     Route: 048
     Dates: start: 20120321

REACTIONS (2)
  - Febrile neutropenia [None]
  - Rash [None]
